FAERS Safety Report 12890404 (Version 1)
Quarter: 2016Q4

REPORT INFORMATION
  Report Type: Report from Study
  Country: None (occurrence: US)
  Receive Date: 20161027
  Receipt Date: 20161027
  Transmission Date: 20170207
  Serious: Yes (Death, Life-Threatening, Hospitalization)
  Sender: FDA-Public Use
  Company Number: US-ABBVIE-11P-163-0857316-00

PATIENT
  Age: 47 Year
  Sex: Male
  Weight: 93.07 kg

DRUGS (1)
  1. HUMIRA [Suspect]
     Active Substance: ADALIMUMAB
     Indication: PSORIASIS
     Route: 058
     Dates: start: 20090223, end: 20090223

REACTIONS (3)
  - Myocardial fibrosis [Recovered/Resolved]
  - Cellulitis [Fatal]
  - Arrhythmia [Fatal]

NARRATIVE: CASE EVENT DATE: 201007
